FAERS Safety Report 9789048 (Version 1)
Quarter: 2013Q4

REPORT INFORMATION
  Report Type: Spontaneous
  Country: US (occurrence: US)
  Receive Date: 20131230
  Receipt Date: 20131230
  Transmission Date: 20140711
  Serious: Yes (Hospitalization, Other)
  Sender: FDA-Public Use
  Company Number: US-B.I. PHARMACEUTICALS,INC./RIDGEFIELD-2013-BI-43586BP

PATIENT
  Age: 80 Year
  Sex: Female
  Weight: 48 kg

DRUGS (7)
  1. COMBIVENT [Suspect]
     Indication: CHRONIC OBSTRUCTIVE PULMONARY DISEASE
     Dosage: STRENGTH: 18 MCG / 103 MCG;
     Route: 055
     Dates: start: 2011, end: 201308
  2. ZOLOFT [Concomitant]
     Route: 048
  3. MUCINEX [Concomitant]
     Route: 048
  4. BUMEX [Concomitant]
     Route: 048
  5. XANAX [Concomitant]
     Route: 048
  6. CRESTOR [Concomitant]
     Route: 048
  7. FLEXIRIL [Concomitant]
     Route: 048

REACTIONS (4)
  - Lung neoplasm malignant [Not Recovered/Not Resolved]
  - Abdominal pain [Recovered/Resolved]
  - Constipation [Recovered/Resolved]
  - Dyspnoea [Recovered/Resolved]
